FAERS Safety Report 10955090 (Version 1)
Quarter: 2015Q1

REPORT INFORMATION
  Report Type: Spontaneous
  Country: DE (occurrence: DE)
  Receive Date: 20150326
  Receipt Date: 20150326
  Transmission Date: 20150721
  Serious: Yes (Other)
  Sender: FDA-Public Use
  Company Number: DE-AMGEN-DEUSP2015028052

PATIENT
  Sex: Male

DRUGS (14)
  1. DOXORUBICIN [Concomitant]
     Active Substance: DOXORUBICIN
     Indication: B-CELL LYMPHOMA
     Dosage: 100 MG, 1 IN 2 WK
     Route: 042
     Dates: start: 20150211
  2. MESNA. [Concomitant]
     Active Substance: MESNA
     Indication: PROPHYLAXIS
     Dosage: 900 MG, 1 IN 2 WK
     Route: 048
     Dates: start: 20150211
  3. PEGFILGRASTIM [Suspect]
     Active Substance: PEGFILGRASTIM
     Indication: B-CELL LYMPHOMA
     Dosage: 6 MG, 1 IN 2 WK
     Route: 058
     Dates: start: 20150214
  4. RITUXIMAB [Concomitant]
     Active Substance: RITUXIMAB
     Indication: B-CELL LYMPHOMA
     Dosage: 750 MG, 1 IN 2 WK
     Route: 042
     Dates: start: 20150206
  5. PREDNISONE. [Concomitant]
     Active Substance: PREDNISONE
     Indication: B-CELL LYMPHOMA
     Dosage: 100 MG, 5 DAYS A CYCLE
     Route: 048
     Dates: start: 20150203
  6. LEVOFLOXACIN. [Concomitant]
     Active Substance: LEVOFLOXACIN
     Indication: PROPHYLAXIS
     Dosage: 500 MG, 7 DAYS/CYCLE
     Route: 048
     Dates: start: 20150215
  7. ALLOPURINOL. [Concomitant]
     Active Substance: ALLOPURINOL
     Indication: HYPERURICAEMIA
     Dosage: 150 MG, 1 IN 1 D
     Route: 048
     Dates: start: 201502
  8. HYDROCHLOROTHIAZID [Concomitant]
     Active Substance: HYDROCHLOROTHIAZIDE
     Dosage: UNK
  9. CYCLOPHOSPHAMIDE. [Concomitant]
     Active Substance: CYCLOPHOSPHAMIDE
     Indication: B-CELL LYMPHOMA
     Dosage: 1500 MG, 1 IN 2 WK
     Route: 042
     Dates: start: 20150211
  10. SULFAMETHOXAZOL W/TRIMETOPRIM [Concomitant]
     Active Substance: SULFAMETHOXAZOLE\TRIMETHOPRIM
     Indication: PROPHYLAXIS
     Dosage: 1920 MG, 2 IN 1 WK
     Route: 048
     Dates: start: 20150211
  11. ACICLOVIR [Concomitant]
     Active Substance: ACYCLOVIR
     Indication: PROPHYLAXIS
     Dosage: 1600 MG, 1 IN 1 D
     Route: 048
     Dates: start: 20150210
  12. VINCRISTINE [Concomitant]
     Active Substance: VINCRISTINE
     Indication: B-CELL LYMPHOMA
     Dosage: 2 MG, 1 IN 2 WK
     Route: 042
     Dates: start: 20150211
  13. TELMISARTAN. [Concomitant]
     Active Substance: TELMISARTAN
     Indication: HYPERTENSION
     Dosage: 40 MG, 1 IN 1 D
     Route: 048
  14. GRANISETRON                        /01178102/ [Concomitant]
     Active Substance: GRANISETRON
     Dosage: 1 MG, 1 IN 2 WK
     Route: 042
     Dates: start: 20150211

REACTIONS (1)
  - Deep vein thrombosis [Not Recovered/Not Resolved]

NARRATIVE: CASE EVENT DATE: 20150223
